FAERS Safety Report 6245594-9 (Version None)
Quarter: 2009Q2

REPORT INFORMATION
  Report Type: 
  Country: None (occurrence: None)
  Receive Date: 20090619
  Receipt Date: 20090518
  Transmission Date: 20091009
  Serious: No
  Sender: FDA-Public Use
  Company Number: ALL1-2009-01398

PATIENT
  Age: 9 Year
  Sex: Male
  Weight: 31.7 kg

DRUGS (1)
  1. VYVANSE [Suspect]
     Indication: ATTENTION DEFICIT/HYPERACTIVITY DISORDER
     Dosage: 20 MG, 1X/DAY:QD, ORAL
     Route: 048
     Dates: start: 20090410, end: 20090424

REACTIONS (3)
  - AUTISM [None]
  - CONDITION AGGRAVATED [None]
  - URINE ANTIMONY INCREASED [None]
